FAERS Safety Report 12738975 (Version 2)
Quarter: 2016Q4

REPORT INFORMATION
  Report Type: Report from Study
  Country: None (occurrence: NL)
  Receive Date: 20160913
  Receipt Date: 20161114
  Transmission Date: 20170207
  Serious: Yes (Death, Life-Threatening)
  Sender: FDA-Public Use
  Company Number: NL-ABBVIE-16P-114-1724645-00

PATIENT
  Age: 70 Year
  Sex: Male
  Weight: 100 kg

DRUGS (8)
  1. OMEPRAZOLE (NON-ABBVIE) [Concomitant]
     Indication: PRODUCT USED FOR UNKNOWN INDICATION
     Route: 048
  2. ZINCOXIDE OINTMENT (NON-ABBVIE) [Concomitant]
     Indication: PRODUCT USED FOR UNKNOWN INDICATION
     Dosage: 100 MG/G, 1-2 TIMES DAILY
     Route: 065
  3. METOCLOPRAMIDE (NON-ABBVIE) [Concomitant]
     Indication: PRODUCT USED FOR UNKNOWN INDICATION
     Dosage: 3-4 TIMES DAILY
     Route: 048
  4. LUCRIN DEPOT [Suspect]
     Active Substance: LEUPROLIDE ACETATE
     Indication: PRODUCT USED FOR UNKNOWN INDICATION
     Route: 065
     Dates: start: 20160824, end: 20160824
  5. ENALAPRIL (NON-ABBVIE) [Concomitant]
     Indication: PRODUCT USED FOR UNKNOWN INDICATION
     Route: 048
  6. ENZALUTAMIDE (NON-ABBVIE) [Concomitant]
     Indication: PRODUCT USED FOR UNKNOWN INDICATION
     Route: 048
  7. HYDROCHLOROTHIAZIDE (NON-ABBVIE) [Concomitant]
     Indication: PRODUCT USED FOR UNKNOWN INDICATION
     Route: 048
  8. INSULIN ISOPHANE (NON-ABBVIE) [Concomitant]
     Indication: PRODUCT USED FOR UNKNOWN INDICATION
     Dosage: 300 IU
     Route: 058

REACTIONS (2)
  - Death [Fatal]
  - Terminal state [Not Recovered/Not Resolved]

NARRATIVE: CASE EVENT DATE: 20161007
